FAERS Safety Report 13330581 (Version 1)
Quarter: 2017Q1

REPORT INFORMATION
  Report Type: Spontaneous
  Country: CA (occurrence: CA)
  Receive Date: 20170314
  Receipt Date: 20170314
  Transmission Date: 20170428
  Serious: Yes (Hospitalization)
  Sender: FDA-Public Use
  Company Number: CA-TEVA-747729ACC

PATIENT
  Age: 65 Year
  Sex: Female

DRUGS (13)
  1. TRYPTOPHAN [Interacting]
     Active Substance: TRYPTOPHAN
     Indication: DEPRESSION
  2. DIAZEPAM. [Concomitant]
     Active Substance: DIAZEPAM
  3. ZOPICLONE [Concomitant]
     Active Substance: ZOPICLONE
  4. TRYPTOPHAN [Interacting]
     Active Substance: TRYPTOPHAN
     Indication: ANXIETY
  5. LEVOTHYROXINE. [Concomitant]
     Active Substance: LEVOTHYROXINE
  6. METHOTRIMEPRAZINE [Concomitant]
     Active Substance: LEVOMEPROMAZINE
  7. TRYPTOPHAN [Interacting]
     Active Substance: TRYPTOPHAN
     Indication: INSOMNIA
     Dosage: 3000 MILLIGRAM DAILY;
     Route: 048
  8. PANTOPRAZOLE [Concomitant]
     Active Substance: PANTOPRAZOLE SODIUM
  9. BUPROPION. [Interacting]
     Active Substance: BUPROPION
     Indication: DEPRESSION
     Dosage: 150 MILLIGRAM DAILY;
     Route: 048
  10. BUPROPION. [Interacting]
     Active Substance: BUPROPION
     Indication: ANXIETY
  11. SINEMET [Interacting]
     Active Substance: CARBIDOPA\LEVODOPA
     Indication: PARKINSON^S DISEASE
     Dosage: 9 DOSAGE FORMS DAILY;
     Route: 048
  12. VENLAFAXINE XR [Suspect]
     Active Substance: VENLAFAXINE HYDROCHLORIDE
     Indication: DEPRESSION
     Dosage: 375 MILLIGRAM DAILY;
     Route: 048
  13. VENLAFAXINE XR [Interacting]
     Active Substance: VENLAFAXINE HYDROCHLORIDE
     Indication: ANXIETY

REACTIONS (10)
  - Drug interaction [Recovering/Resolving]
  - Pain [Recovering/Resolving]
  - Dyspnoea [Recovering/Resolving]
  - Foaming at mouth [Recovering/Resolving]
  - Lactic acidosis [Recovering/Resolving]
  - Tachycardia [Recovering/Resolving]
  - Pulse absent [Recovering/Resolving]
  - Unresponsive to stimuli [Recovering/Resolving]
  - Paraesthesia [Recovering/Resolving]
  - Loss of consciousness [Recovering/Resolving]
